FAERS Safety Report 8738936 (Version 2)
Quarter: 2012Q4

REPORT INFORMATION
  Report Type: Spontaneous
  Country: DK (occurrence: None)
  Receive Date: 20120806
  Receipt Date: 20120814
  Transmission Date: 20130627
  Serious: Yes (Other)
  Sender: FDA-Public Use
  Company Number: 2012MA009369

PATIENT
  Age: 89 Year
  Sex: Female

DRUGS (3)
  1. DOXYCYCLINE HYCLATE [Suspect]
     Indication: INFECTION
     Dosage: 100 MG;BID
     Dates: start: 20120606, end: 20120608
  2. DIGOXIN [Concomitant]
  3. RANITIDINE [Concomitant]

REACTIONS (4)
  - Hyperglycaemia [None]
  - Skin ulcer [None]
  - Disease progression [None]
  - Leg amputation [None]
